FAERS Safety Report 5284455-9 (Version None)
Quarter: 2007Q2

REPORT INFORMATION
  Report Type: 
  Country: None (occurrence: None)
  Receive Date: 20070403
  Receipt Date: 20070329
  Transmission Date: 20071010
  Serious: Yes (Hospitalization, Disabling)
  Sender: FDA-Public Use
  Company Number: AUWYE696116FEB07

PATIENT
  Sex: Female

DRUGS (7)
  1. EFFEXOR XR [Suspect]
     Indication: DEPRESSION
     Route: 048
     Dates: start: 20060201
  2. EFFEXOR XR [Suspect]
     Indication: ANXIETY
     Route: 048
     Dates: end: 20070201
  3. EFFEXOR XR [Suspect]
     Route: 048
     Dates: start: 20070201, end: 20070201
  4. EFFEXOR XR [Suspect]
     Route: 048
     Dates: start: 20070320
  5. NORMISON [Concomitant]
     Indication: SLEEP DISORDER THERAPY
     Dosage: UNKNOWN, TAKEN AS REQUIRED
     Route: 048
  6. PANTOPRAZOLE SODIUM [Concomitant]
     Indication: HIATUS HERNIA
     Dosage: UNKNOWN
     Route: 048
  7. PANTOPRAZOLE SODIUM [Concomitant]
     Indication: GASTROOESOPHAGEAL REFLUX DISEASE

REACTIONS (11)
  - ANXIETY [None]
  - ASTHENIA [None]
  - DISORIENTATION [None]
  - DRUG WITHDRAWAL SYNDROME [None]
  - DYSKINESIA [None]
  - EMOTIONAL DISORDER [None]
  - FEAR [None]
  - HEADACHE [None]
  - NAUSEA [None]
  - PARAESTHESIA [None]
  - VOMITING [None]
